FAERS Safety Report 4822304-0 (Version None)
Quarter: 2005Q4

REPORT INFORMATION
  Report Type: 
  Country: None (occurrence: None)
  Receive Date: 20051103
  Receipt Date: 20051013
  Transmission Date: 20060501
  Serious: Yes (Hospitalization)
  Sender: FDA-Public Use
  Company Number: US_0504116088

PATIENT
  Age: 76 Year
  Sex: Female
  Weight: 39.9165 kg

DRUGS (9)
  1. FORTEO [Suspect]
     Indication: OSTEOPOROSIS
     Dosage: 20 UG/1 DAY
     Dates: start: 20040401, end: 20050301
  2. KETOPROFEN [Concomitant]
  3. OMEPRAZOLE [Concomitant]
  4. VITAMIN B NOS [Concomitant]
  5. ATENOLOL [Concomitant]
  6. CHLORTHALIDONE [Concomitant]
  7. SIMVASTATIN [Concomitant]
  8. HIGROTON (CHORTALIDONE) [Concomitant]
  9. ROCALTROL [Concomitant]

REACTIONS (4)
  - DRUG INEFFECTIVE [None]
  - NEPHROLITHIASIS [None]
  - PARATHYROID TUMOUR BENIGN [None]
  - PHARMACEUTICAL PRODUCT COMPLAINT [None]
